FAERS Safety Report 5621138-7 (Version None)
Quarter: 2008Q1

REPORT INFORMATION
  Report Type: 
  Country: None (occurrence: None)
  Receive Date: 20080114
  Receipt Date: 20061201
  Transmission Date: 20080703
  Serious: Yes (Hospitalization)
  Sender: FDA-Public Use
  Company Number: A03200607189

PATIENT
  Age: 85 Year
  Sex: Female

DRUGS (11)
  1. PLAVIX [Suspect]
     Indication: CARDIAC FAILURE CONGESTIVE
     Dosage: ORAL
     Route: 048
     Dates: end: 20061004
  2. EZETIMIBE [Concomitant]
  3. ATORVASTATIN CALCIUM [Concomitant]
  4. LOSARTAN POTASSIUM [Concomitant]
  5. ALLOPURINOL [Concomitant]
  6. LANSOPRAZOLE [Concomitant]
  7. SPIRONOLACTONE [Concomitant]
  8. FUROSEMIDE [Concomitant]
  9. VITAMIN D [Concomitant]
  10. VITAMIN B-12 [Concomitant]
  11. ACETYLSALICYLIC ACID SRT [Concomitant]

REACTIONS (4)
  - ANGINA PECTORIS [None]
  - INFLUENZA LIKE ILLNESS [None]
  - OESOPHAGITIS [None]
  - RASH [None]
